FAERS Safety Report 4444955-8 (Version None)
Quarter: 2004Q3

REPORT INFORMATION
  Report Type: 
  Country: None (occurrence: None)
  Receive Date: 20040909
  Receipt Date: 20040831
  Transmission Date: 20050211
  Serious: Yes (Hospitalization)
  Sender: FDA-Public Use
  Company Number: FR-ROCHE-379165

PATIENT
  Sex: Male
  Weight: 2.5 kg

DRUGS (7)
  1. CELLCEPT [Suspect]
  2. NEORAL [Suspect]
  3. CORTANCYL [Suspect]
  4. NEORECORMON [Concomitant]
  5. SECTRAL [Concomitant]
     Indication: HYPERTENSION
  6. METHYLDOPA [Concomitant]
  7. ALDOMET [Concomitant]
     Indication: HYPERTENSION

REACTIONS (12)
  - BRADYCARDIA NEONATAL [None]
  - CYANOSIS NEONATAL [None]
  - DRUG EXPOSURE DURING PREGNANCY [None]
  - FOETAL DISORDER [None]
  - GRANULOCYTOPENIA [None]
  - GRANULOCYTOPENIA NEONATAL [None]
  - HYPOTHERMIA NEONATAL [None]
  - INFECTION [None]
  - MALAISE [None]
  - NEONATAL DISORDER [None]
  - OXYGEN SATURATION DECREASED [None]
  - SMALL FOR DATES BABY [None]
